FAERS Safety Report 6813372-5 (Version None)
Quarter: 2010Q3

REPORT INFORMATION
  Report Type: 
  Country: None (occurrence: None)
  Receive Date: 20100701
  Receipt Date: 20100621
  Transmission Date: 20110219
  Serious: Yes (Other)
  Sender: FDA-Public Use
  Company Number: PHHY2010JP39276

PATIENT
  Age: 55 Year
  Sex: Male

DRUGS (3)
  1. RITALIN [Suspect]
     Indication: NARCOLEPSY
     Dosage: 2 DF, TID
     Route: 048
  2. RITALIN [Suspect]
     Dosage: 60 MG, QD
     Route: 048
  3. RITALIN [Suspect]
     Dosage: 10 MG, QID
     Route: 048

REACTIONS (1)
  - HALLUCINATION, AUDITORY [None]
